FAERS Safety Report 16319683 (Version 1)
Quarter: 2019Q2

REPORT INFORMATION
  Report Type: Report from Study
  Country: DE (occurrence: DE)
  Receive Date: 20190516
  Receipt Date: 20190516
  Transmission Date: 20190711
  Serious: Yes (Hospitalization)
  Sender: FDA-Public Use
  Company Number: DE-IPSEN BIOPHARMACEUTICALS, INC.-2019-07852

PATIENT
  Age: 67 Year
  Sex: Female
  Weight: 60 kg

DRUGS (3)
  1. ONIVYDE [Suspect]
     Active Substance: IRINOTECAN HYDROCHLORIDE
     Indication: PANCREATIC CARCINOMA
     Route: 042
     Dates: start: 20181102
  2. FOLINSAEURE ACTAVIS [Suspect]
     Active Substance: LEUCOVORIN CALCIUM
     Indication: PANCREATIC CARCINOMA
     Route: 065
     Dates: start: 20181102, end: 20181102
  3. FLUOROURACIL. [Suspect]
     Active Substance: FLUOROURACIL
     Indication: PANCREATIC CARCINOMA
     Route: 042
     Dates: start: 20181102, end: 20181104

REACTIONS (1)
  - Abdominal pain [Recovering/Resolving]

NARRATIVE: CASE EVENT DATE: 20181113
